FAERS Safety Report 7638032-2 (Version None)
Quarter: 2011Q3

REPORT INFORMATION
  Report Type: 
  Country: None (occurrence: None)
  Receive Date: 20110727
  Receipt Date: 20110718
  Transmission Date: 20111222
  Serious: Yes (Hospitalization, Other)
  Sender: FDA-Public Use
  Company Number: US-BAYER-2011-051395

PATIENT
  Age: 25 Year
  Sex: Female

DRUGS (7)
  1. YAZ [Suspect]
     Indication: ACNE
     Dosage: UNK
     Dates: start: 20090501, end: 20090623
  2. CYCLOBENZAPRINE [Concomitant]
     Indication: PRODUCT USED FOR UNKNOWN INDICATION
     Dosage: UNK
     Dates: start: 20090601
  3. ANAPROX [Concomitant]
     Dosage: UNK UNK, BID
     Route: 048
     Dates: start: 20090602
  4. CARISOPRODOL [Concomitant]
     Indication: PRODUCT USED FOR UNKNOWN INDICATION
     Dosage: UNK
     Dates: start: 20090601
  5. YAZ [Suspect]
     Indication: MENSTRUATION IRREGULAR
  6. NAPROXEN [Concomitant]
     Indication: PRODUCT USED FOR UNKNOWN INDICATION
     Dosage: UNK
     Dates: start: 20090601
  7. FLEXERIL [Concomitant]
     Dosage: 10 MG, TID
     Route: 048
     Dates: start: 20090602

REACTIONS (12)
  - OEDEMA PERIPHERAL [None]
  - ERYTHEMA [None]
  - ANXIETY [None]
  - WALKING DISTANCE TEST ABNORMAL [None]
  - FEAR [None]
  - DYSPNOEA [None]
  - PSYCHIATRIC SYMPTOM [None]
  - EXERCISE TOLERANCE DECREASED [None]
  - DEEP VEIN THROMBOSIS [None]
  - SKIN WARM [None]
  - ANHEDONIA [None]
  - PAIN IN EXTREMITY [None]
